FAERS Safety Report 13509358 (Version 3)
Quarter: 2019Q1

REPORT INFORMATION
  Report Type: Spontaneous
  Country: US (occurrence: US)
  Receive Date: 20170503
  Receipt Date: 20190301
  Transmission Date: 20190417
  Serious: No
  Sender: FDA-Public Use
  Company Number: US-SA-2017SA019208

PATIENT
  Age: 76 Year
  Sex: Female

DRUGS (2)
  1. PRALUENT [Suspect]
     Active Substance: ALIROCUMAB
     Dosage: 75 MG, QW
     Route: 058
     Dates: start: 20190221
  2. PRALUENT [Suspect]
     Active Substance: ALIROCUMAB
     Indication: HYPERLIPIDAEMIA
     Dosage: 75 MG,QOW
     Route: 058
     Dates: start: 20161207, end: 20190214

REACTIONS (12)
  - Feeling abnormal [Unknown]
  - Contusion [Unknown]
  - Injection site erythema [Unknown]
  - Diarrhoea [Unknown]
  - Vision blurred [Unknown]
  - Nausea [Unknown]
  - Joint swelling [Unknown]
  - Skin exfoliation [Unknown]
  - Headache [Unknown]
  - Inappropriate schedule of product administration [Unknown]
  - Feeling abnormal [Unknown]
  - Feeling hot [Unknown]

NARRATIVE: CASE EVENT DATE: 20170127
